FAERS Safety Report 10082548 (Version 2)
Quarter: 2014Q2

REPORT INFORMATION
  Report Type: Spontaneous
  Country: US (occurrence: US)
  Receive Date: 20140416
  Receipt Date: 20140416
  Transmission Date: 20141212
  Serious: No
  Sender: FDA-Public Use
  Company Number: US-MALLINCKRODT-T201304834

PATIENT
  Age: 64 Year
  Sex: Female
  Weight: 72.56 kg

DRUGS (1)
  1. METHYLIN [Suspect]
     Indication: NARCOLEPSY
     Dosage: 10 MG, TID
     Route: 048
     Dates: start: 20131102

REACTIONS (2)
  - Throat irritation [Recovering/Resolving]
  - Rash [Not Recovered/Not Resolved]
